FAERS Safety Report 5886893-X (Version None)
Quarter: 2008Q3

REPORT INFORMATION
  Report Type: 
  Country: None (occurrence: None)
  Receive Date: 20080917
  Receipt Date: 20080909
  Transmission Date: 20090109
  Serious: Yes (Other)
  Sender: FDA-Public Use
  Company Number: AT-GILEAD-2008-0018121

PATIENT
  Age: 33 Year
  Sex: Female

DRUGS (11)
  1. TRUVADA [Suspect]
     Indication: HIV INFECTION
  2. KALETRA [Concomitant]
  3. TELZIR [Concomitant]
  4. NORVIR [Concomitant]
  5. CLINDAMYCIN HCL [Concomitant]
  6. SULFODIAZIN [Concomitant]
  7. DARAPRIM [Concomitant]
  8. FORTECORTIN [Concomitant]
  9. NEXIUM [Concomitant]
  10. VALTREX [Concomitant]
  11. CALCIUM-FOLINAT [Concomitant]

REACTIONS (4)
  - CEREBRAL HAEMORRHAGE [None]
  - HEADACHE [None]
  - HYPERTONIA [None]
  - RENAL FAILURE [None]
